FAERS Safety Report 8612010-9 (Version None)
Quarter: 2012Q3

REPORT INFORMATION
  Report Type: 
  Country: None (occurrence: None)
  Receive Date: 20120822
  Receipt Date: 20120817
  Transmission Date: 20120928
  Serious: Yes (Death)
  Sender: FDA-Public Use
  Company Number: JP-VIIV HEALTHCARE LIMITED-B0811249A

PATIENT
  Sex: Male
  Weight: 48 kg

DRUGS (11)
  1. NORVIR [Suspect]
     Dosage: 200MG PER DAY
     Route: 048
     Dates: start: 20120510, end: 20120706
  2. MARAVIROC [Suspect]
     Indication: HIV INFECTION
     Dosage: 300MG PER DAY
     Route: 048
     Dates: start: 20120510, end: 20120706
  3. PREZISTA [Suspect]
     Indication: HIV INFECTION
     Dosage: 1200MG PER DAY
     Route: 048
     Dates: start: 20120510, end: 20120706
  4. MEXITIL [Concomitant]
     Indication: ARRHYTHMIA
     Dosage: 300MG PER DAY
     Route: 048
     Dates: start: 20090520
  5. INTELENCE [Concomitant]
     Indication: HIV INFECTION
     Dosage: 400MG PER DAY
     Route: 048
     Dates: end: 20120510
  6. OLMESARTAN MEDOXOMIL [Concomitant]
     Indication: HYPERTENSION
     Dosage: 20MG PER DAY
     Route: 048
     Dates: start: 20090415
  7. CONIEL [Concomitant]
     Indication: HYPERTENSION
     Dosage: 8MG PER DAY
     Route: 048
     Dates: start: 20061220
  8. CLONAZEPAM [Concomitant]
     Indication: ESSENTIAL TREMOR
     Route: 048
     Dates: start: 20100707
  9. ISENTRESS [Suspect]
     Indication: HIV INFECTION
     Dosage: 800MG PER DAY
     Route: 048
     Dates: start: 20120510, end: 20120706
  10. NORVIR [Suspect]
     Indication: HIV INFECTION
     Dosage: 200MG PER DAY
     Route: 048
     Dates: start: 20120510, end: 20120706
  11. REYATAZ [Concomitant]
     Indication: HIV INFECTION
     Dosage: 400MG PER DAY
     Route: 048
     Dates: end: 20120510

REACTIONS (6)
  - OEDEMA [None]
  - ANAEMIA [None]
  - RENAL IMPAIRMENT [None]
  - CEREBRAL HAEMORRHAGE TRAUMATIC [None]
  - DEATH [None]
  - FALL [None]
